FAERS Safety Report 5694930-0 (Version None)
Quarter: 2008Q2

REPORT INFORMATION
  Report Type: 
  Country: None (occurrence: None)
  Receive Date: 20080404
  Receipt Date: 20080325
  Transmission Date: 20081010
  Serious: Yes (Hospitalization)
  Sender: FDA-Public Use
  Company Number: CN-ROCHE-555289

PATIENT
  Age: 49 Year
  Sex: Male

DRUGS (2)
  1. XELODA [Suspect]
     Route: 048
  2. OXALIPLATIN [Suspect]
     Route: 065

REACTIONS (1)
  - TINNITUS [None]
